FAERS Safety Report 10109505 (Version 1)
Quarter: 2014Q2

REPORT INFORMATION
  Report Type: Spontaneous
  Country: FR (occurrence: None)
  Receive Date: 20140423
  Receipt Date: 20140423
  Transmission Date: 20141212
  Serious: Yes (Hospitalization)
  Sender: FDA-Public Use
  Company Number: SYM-2014-19796

PATIENT
  Age: 81 Year
  Sex: Female

DRUGS (11)
  1. FLAGYL [Suspect]
     Indication: CLOSTRIDIUM DIFFICILE INFECTION
     Route: 048
     Dates: start: 20140217, end: 20140220
  2. PRIMPERAN [Suspect]
     Indication: PRODUCT USED FOR UNKNOWN INDICATION
     Dates: start: 20140216, end: 20140221
  3. ACTISKENAN [Suspect]
     Indication: NEURALGIA
     Route: 048
     Dates: start: 20140207, end: 20140218
  4. PANTOPRAZOLE (PANTOPRAZOLE) [Concomitant]
  5. TIORFAN (ACETORPHAN) (ACETORPHAN) [Concomitant]
  6. ORBENINE (CLOXACILLIN SODIUM) [Concomitant]
  7. ATENOLOL (ATENOLOL) [Concomitant]
  8. FLIXOTIDE (FLUTICASONE PROPIONATE) [Concomitant]
  9. PREVISCAN (FLUINDIONE) [Concomitant]
  10. INSULIN (INSULIN) [Concomitant]
  11. SKENAN (MORPHINE SULFATE) [Concomitant]

REACTIONS (2)
  - Confusional state [None]
  - Hallucination [None]
